FAERS Safety Report 18472919 (Version 1)
Quarter: 2020Q4

REPORT INFORMATION
  Report Type: Report from Study
  Country: JP (occurrence: JP)
  Receive Date: 20201106
  Receipt Date: 20201106
  Transmission Date: 20210114
  Serious: Yes (Hospitalization, Other)
  Sender: FDA-Public Use
  Company Number: JP-JNJFOC-A-CH2017-148484

PATIENT
  Sex: Male

DRUGS (64)
  1. EPOPROSTENOL ACT [Suspect]
     Active Substance: EPOPROSTENOL
     Dosage: 72.73 NG/KG, PER MIN
     Route: 041
     Dates: end: 20160803
  2. EPOPROSTENOL ACT [Suspect]
     Active Substance: EPOPROSTENOL
     Dosage: 75.0 NG/KG, PER MIN
     Route: 041
     Dates: start: 20160804
  3. EPOPROSTENOL ACT [Suspect]
     Active Substance: EPOPROSTENOL
     Dosage: 95.2 NG/KG, PER MIN
     Route: 041
     Dates: start: 20170601
  4. OPSUMIT [Suspect]
     Active Substance: MACITENTAN
     Indication: PULMONARY ARTERIAL HYPERTENSION
     Dosage: 10 MG, QD
     Route: 048
     Dates: start: 20150731
  5. ADEMPAS [Suspect]
     Active Substance: RIOCIGUAT
     Dosage: 2 MG, TID
     Route: 048
     Dates: start: 20161209, end: 20161212
  6. ADEMPAS [Suspect]
     Active Substance: RIOCIGUAT
     Route: 048
     Dates: start: 20171023
  7. CEFAZOLIN [Concomitant]
     Active Substance: CEFAZOLIN
     Route: 042
     Dates: start: 20161208, end: 20161208
  8. CEFACLOR. [Concomitant]
     Active Substance: CEFACLOR
     Indication: PROPHYLAXIS
     Route: 048
     Dates: start: 20151125, end: 20151221
  9. REVATIO [Concomitant]
     Active Substance: SILDENAFIL CITRATE
     Route: 048
     Dates: start: 20160710
  10. CEFZON [CEFDINIR] [Concomitant]
     Active Substance: CEFDINIR
     Indication: PROPHYLAXIS
     Route: 048
     Dates: start: 20160115
  11. ZITHROMAC [Concomitant]
     Active Substance: AZITHROMYCIN DIHYDRATE
     Indication: PNEUMONIA
     Route: 048
     Dates: start: 20161024, end: 20161028
  12. TAZOPIP [Concomitant]
     Active Substance: PIPERACETAZINE\TAZOBACTAM
     Indication: PROPHYLAXIS
     Dates: start: 20160930, end: 20161003
  13. EPOPROSTENOL ACT [Suspect]
     Active Substance: EPOPROSTENOL
     Dosage: 19.86 NG/KG, PER MIN
     Route: 041
  14. ADCIRCA [Suspect]
     Active Substance: TADALAFIL
     Dosage: 5 MG, BID
     Route: 048
     Dates: start: 20160511, end: 20160619
  15. LEVOCETIRIZINE DIHYDROCHLORIDE. [Suspect]
     Active Substance: LEVOCETIRIZINE DIHYDROCHLORIDE
     Indication: DERMATITIS ATOPIC
     Route: 048
  16. FUROSEMIDE. [Concomitant]
     Active Substance: FUROSEMIDE
     Route: 048
     Dates: start: 20160729
  17. REVATIO [Concomitant]
     Active Substance: SILDENAFIL CITRATE
     Indication: PULMONARY ARTERIAL HYPERTENSION
     Route: 048
     Dates: start: 20160705
  18. EPOPROSTENOL ACT [Suspect]
     Active Substance: EPOPROSTENOL
     Dosage: 57.45 NG/KG, PER MIN
     Route: 041
  19. FUROSEMIDE. [Concomitant]
     Active Substance: FUROSEMIDE
     Dosage: 60-80 MG PER DAY
     Route: 048
     Dates: start: 20151222
  20. CEFZON [CEFDINIR] [Concomitant]
     Active Substance: CEFDINIR
     Route: 048
     Dates: start: 20160302
  21. BAKTAR [Concomitant]
     Active Substance: SULFAMETHOXAZOLE\TRIMETHOPRIM
     Indication: PROPHYLAXIS
     Route: 048
     Dates: start: 20161102, end: 20161223
  22. FEBURIC [Concomitant]
     Active Substance: FEBUXOSTAT
     Indication: RIGHT VENTRICULAR FAILURE
     Route: 048
     Dates: start: 20171011
  23. LUPRAC [Concomitant]
     Active Substance: TORSEMIDE
     Indication: PULMONARY ARTERIAL HYPERTENSION
     Route: 048
     Dates: start: 20171109
  24. EPOPROSTENOL ACT [Suspect]
     Active Substance: EPOPROSTENOL
     Dosage: 30.6 NG/KG, PER MIN
     Route: 041
  25. EPOPROSTENOL ACT [Suspect]
     Active Substance: EPOPROSTENOL
     Dosage: 92.3 NG/KG, PER MIN
     Route: 041
     Dates: start: 20161219, end: 20170530
  26. FUROSEMIDE. [Concomitant]
     Active Substance: FUROSEMIDE
     Dosage: 80-100MG/DAY
     Route: 048
  27. TRAMADOL HYDROCHLORIDE. [Concomitant]
     Active Substance: TRAMADOL HYDROCHLORIDE
  28. CEFAZOLIN [Concomitant]
     Active Substance: CEFAZOLIN
     Route: 042
     Dates: start: 20150917, end: 20150917
  29. REVATIO [Concomitant]
     Active Substance: SILDENAFIL CITRATE
     Route: 048
  30. K-SUPPLY [Concomitant]
     Active Substance: POTASSIUM CHLORIDE
     Route: 048
  31. OXYGEN. [Concomitant]
     Active Substance: OXYGEN
  32. PREDONINE [Concomitant]
     Active Substance: PREDNISOLONE
     Indication: PROPHYLAXIS
     Route: 048
     Dates: start: 20161223
  33. EPOPROSTENOL ACT [Suspect]
     Active Substance: EPOPROSTENOL
     Dosage: 20.57 NG/KG, PER MIN
     Route: 041
  34. EPOPROSTENOL ACT [Suspect]
     Active Substance: EPOPROSTENOL
     Dosage: 54.26 NG/KG, PER MIN
     Route: 041
  35. EPOPROSTENOL ACT [Suspect]
     Active Substance: EPOPROSTENOL
     Dosage: 59.04 NG/KG, PER MIN
     Route: 041
     Dates: start: 20160615
  36. EPOPROSTENOL ACT [Suspect]
     Active Substance: EPOPROSTENOL
     Dosage: 82 NG/KG, PER MIN
     Route: 041
     Dates: end: 20161219
  37. EPOPROSTENOL ACT [Suspect]
     Active Substance: EPOPROSTENOL
     Route: 041
  38. ADEMPAS [Suspect]
     Active Substance: RIOCIGUAT
     Dosage: 2.5 MG, TID
     Route: 048
     Dates: start: 20150815, end: 20161208
  39. ADONA [CARBAZOCHROME SODIUM SULFONATE] [Suspect]
     Active Substance: CARBAZOCHROME SODIUM SULFONATE
     Indication: HAEMOPTYSIS
     Dosage: UNK
     Route: 048
  40. TRANEXAMIC ACID. [Suspect]
     Active Substance: TRANEXAMIC ACID
     Indication: HAEMOPTYSIS
     Dosage: UNK
     Route: 048
  41. FUROSEMIDE. [Concomitant]
     Active Substance: FUROSEMIDE
     Route: 048
     Dates: start: 20150925
  42. ALDACTONE [Concomitant]
     Active Substance: SPIRONOLACTONE
     Indication: RIGHT VENTRICULAR FAILURE
     Route: 048
     Dates: start: 20160108, end: 20160721
  43. CEFZON [CEFDINIR] [Concomitant]
     Active Substance: CEFDINIR
     Route: 048
     Dates: start: 20170213
  44. CEFZON [CEFDINIR] [Concomitant]
     Active Substance: CEFDINIR
     Route: 048
     Dates: start: 20170626
  45. EPOPROSTENOL ACT [Suspect]
     Active Substance: EPOPROSTENOL
     Dosage: 44.68 NG/KG, PER MIN
     Route: 041
     Dates: start: 20160106
  46. EPOPROSTENOL ACT [Suspect]
     Active Substance: EPOPROSTENOL
     Dosage: 100.6 NG/KG, PER MIN
     Route: 041
  47. ADEMPAS [Suspect]
     Active Substance: RIOCIGUAT
     Indication: PULMONARY ARTERIAL HYPERTENSION
     Dosage: 0.5 MG, TID
     Route: 048
     Dates: start: 20150804, end: 20150814
  48. ADEMPAS [Suspect]
     Active Substance: RIOCIGUAT
     Dosage: 1.5 MG, TID
     Route: 048
     Dates: start: 20161213, end: 20170518
  49. ADEMPAS [Suspect]
     Active Substance: RIOCIGUAT
     Dosage: 0.5-1MG/TID
     Route: 048
  50. ADCIRCA [Suspect]
     Active Substance: TADALAFIL
     Dosage: 15-30MG/DAY
     Route: 048
  51. CEFZON [CEFDINIR] [Concomitant]
     Active Substance: CEFDINIR
     Route: 048
     Dates: start: 20171218
  52. BIOFERMIN [Concomitant]
     Active Substance: DIETARY SUPPLEMENT\PROBIOTICS
     Indication: PROPHYLAXIS
     Route: 048
     Dates: start: 20160930, end: 20161027
  53. MEROPENEM. [Concomitant]
     Active Substance: MEROPENEM
     Indication: PNEUMONIA
     Route: 042
     Dates: start: 20161021, end: 20161103
  54. LEVOFLOXACIN HEMIHYDRATE [Concomitant]
     Active Substance: LEVOFLOXACIN
     Indication: PROPHYLAXIS
     Dates: start: 20171201, end: 20171206
  55. EPOPROSTENOL ACT [Suspect]
     Active Substance: EPOPROSTENOL
     Indication: PULMONARY ARTERIAL HYPERTENSION
     Dosage: 0.35 NG/KG, PER MIN
     Route: 041
  56. EPOPROSTENOL ACT [Suspect]
     Active Substance: EPOPROSTENOL
     Dosage: 26.6 NG/KG, PER MIN
     Route: 041
     Dates: start: 20150930
  57. EPOPROSTENOL ACT [Suspect]
     Active Substance: EPOPROSTENOL
     Dosage: 54.6 NG/KG, PER MIN
     Route: 041
     Dates: start: 20160418
  58. ADCIRCA [Suspect]
     Active Substance: TADALAFIL
     Indication: PULMONARY ARTERIAL HYPERTENSION
     Dosage: 5 MG, QD
     Route: 048
     Dates: start: 20160418, end: 20160510
  59. ADCIRCA [Suspect]
     Active Substance: TADALAFIL
     Route: 048
     Dates: start: 20160701
  60. CEFAZOLIN [Concomitant]
     Active Substance: CEFAZOLIN
     Indication: PROPHYLAXIS
     Route: 042
     Dates: start: 20150909, end: 20150913
  61. CEFAZOLIN [Concomitant]
     Active Substance: CEFAZOLIN
     Route: 042
     Dates: start: 20150924, end: 20150924
  62. CEFAZOLIN [Concomitant]
     Active Substance: CEFAZOLIN
     Route: 042
     Dates: start: 20170518, end: 20170518
  63. K-SUPPLY [Concomitant]
     Active Substance: POTASSIUM CHLORIDE
     Indication: ELECTROLYTE SUBSTITUTION THERAPY
     Route: 048
     Dates: start: 20160112
  64. SAMSCA [Concomitant]
     Active Substance: TOLVAPTAN

REACTIONS (13)
  - Transfusion [Unknown]
  - Pulmonary hypertension [Recovering/Resolving]
  - Pyrexia [Recovered/Resolved]
  - Headache [Recovering/Resolving]
  - Pneumonia [Recovered/Resolved]
  - Concomitant disease aggravated [Recovering/Resolving]
  - Catheter management [Unknown]
  - Anaemia [Recovered/Resolved]
  - Right ventricular failure [Recovering/Resolving]
  - Haemoptysis [Recovered/Resolved]
  - Kidney congestion [Recovering/Resolving]
  - Eosinophilic pneumonia [Recovered/Resolved]
  - Device related infection [Recovered/Resolved]

NARRATIVE: CASE EVENT DATE: 20150821
